FAERS Safety Report 9415290 (Version 1)
Quarter: 2013Q3

REPORT INFORMATION
  Report Type: Spontaneous
  Country: US (occurrence: US)
  Receive Date: 20130723
  Receipt Date: 20130723
  Transmission Date: 20140515
  Serious: Yes (Hospitalization, Other)
  Sender: FDA-Public Use
  Company Number: US-PFIZER INC-2013211125

PATIENT
  Age: 53 Year
  Sex: Male

DRUGS (4)
  1. GEODON [Suspect]
     Indication: POST-TRAUMATIC STRESS DISORDER
     Dosage: 60 MG, 1X/DAY
  2. GEODON [Suspect]
     Indication: DEPRESSION
  3. SPIRIVA [Suspect]
     Dosage: UNK
  4. LANTUS [Concomitant]
     Indication: TYPE 2 DIABETES MELLITUS
     Dosage: 40 IU, 1X/DAY AT NIGHT

REACTIONS (4)
  - Off label use [Unknown]
  - Post-traumatic stress disorder [Unknown]
  - Mood swings [Unknown]
  - Wrong technique in drug usage process [Unknown]
